FAERS Safety Report 8661208 (Version 3)
Quarter: 2013Q4

REPORT INFORMATION
  Report Type: Spontaneous
  Country: JP (occurrence: JP)
  Receive Date: 20120712
  Receipt Date: 20131105
  Transmission Date: 20140711
  Serious: Yes (Hospitalization)
  Sender: FDA-Public Use
  Company Number: JP-009507513-1207JPN000015

PATIENT
  Age: 45 Year
  Sex: Female
  Weight: 63 kg

DRUGS (11)
  1. JANUVIA TABLETS 100MG [Suspect]
     Indication: TYPE 2 DIABETES MELLITUS
     Dosage: 100 MG, QD
     Route: 048
     Dates: start: 20110216
  2. JANUVIA TABLETS 100MG [Suspect]
     Dosage: 50 MG, QD
     Route: 048
     Dates: start: 20110202, end: 20110215
  3. GLIMICRON [Concomitant]
     Dosage: DAILY DOSAGE UNKNOWN
     Route: 048
  4. LIVALO [Concomitant]
     Dosage: DAILY DOSAGE UNKNOWN
     Route: 048
  5. METGLUCO [Concomitant]
     Dosage: DAILY DOSAGE UNKNOWN
     Route: 048
  6. ABILIFY [Concomitant]
     Dosage: DAILY DOSAGE UNKNOWN
     Route: 048
  7. TASMOLIN (BIPERIDEN) [Concomitant]
     Dosage: DAILY DOSAGE UNKNOWN
     Route: 048
  8. CYMBALTA [Concomitant]
     Dosage: DAILY DOSAGE UNKNOWN
     Route: 048
  9. DESYREL [Concomitant]
     Dosage: DAILY DOSAGE UNKNOWN
     Route: 048
  10. RIVOTRIL [Concomitant]
     Dosage: DAILY DOSAGE UNKNOWN
     Route: 048
  11. WYPAX [Concomitant]
     Dosage: DAILY DOSAGE UNKNOWN
     Route: 048

REACTIONS (1)
  - Microcytic anaemia [Not Recovered/Not Resolved]
